FAERS Safety Report 12385478 (Version 1)
Quarter: 2016Q2

REPORT INFORMATION
  Report Type: Spontaneous
  Country: FR (occurrence: FR)
  Receive Date: 20160519
  Receipt Date: 20160519
  Transmission Date: 20160815
  Serious: Yes (Death, Other)
  Sender: FDA-Public Use
  Company Number: FR-PFIZER INC-2016250598

PATIENT
  Age: 50 Year
  Sex: Female

DRUGS (11)
  1. INSTANYL [Concomitant]
     Active Substance: FENTANYL
     Dosage: MAXIMUM 6-12 DOSAGE FORMS DAILY
     Route: 045
  2. METHYLPREDNISOLONE. [Suspect]
     Active Substance: METHYLPREDNISOLONE
     Indication: PREMEDICATION
     Dosage: 80 MG, CYCLIC
     Route: 042
     Dates: start: 20150824, end: 20151214
  3. DOCETAXEL ACCORD [Suspect]
     Active Substance: DOCETAXEL
     Indication: ADENOCARCINOMA GASTRIC
     Dosage: 76 MG, CYCLIC
     Route: 041
     Dates: start: 20150824, end: 20151214
  4. EFFERALGAN [Concomitant]
     Active Substance: ACETAMINOPHEN
     Dosage: 1 G, 4X/DAY
     Route: 048
  5. OXALIPLATIN TEVA [Suspect]
     Active Substance: OXALIPLATIN
     Indication: ADENOCARCINOMA GASTRIC
     Dosage: 130 MG, CYCLIC
     Route: 041
     Dates: start: 20150824, end: 20151112
  6. ONDANSETRON [Suspect]
     Active Substance: ONDANSETRON
     Indication: PREMEDICATION
     Dosage: 8 MG, CYCLIC
     Route: 042
     Dates: start: 20150824, end: 20151214
  7. ELVORINE [Suspect]
     Active Substance: LEUCOVORIN CALCIUM
     Indication: ADENOCARCINOMA GASTRIC
     Dosage: 300 MG, CYCLIC
     Route: 041
     Dates: start: 20150907, end: 20151026
  8. DUROGESIC [Concomitant]
     Active Substance: FENTANYL
     Dosage: 1 DF, EVERY 3 DAYS
     Route: 062
  9. FLUOROURACIL ACCORD [Suspect]
     Active Substance: FLUOROURACIL
     Indication: ADENOCARCINOMA GASTRIC
     Dosage: 3600 MG, CYCLIC
     Route: 041
     Dates: start: 20150824, end: 20151214
  10. INEXIUM /01479302/ [Concomitant]
     Active Substance: ESOMEPRAZOLE MAGNESIUM
     Dosage: 40 MG, DAILY
     Route: 048
  11. CALCIUM LEVOFOLINATE DE CALCIUM WINTHROP [Suspect]
     Active Substance: LEVOLEUCOVORIN CALCIUM
     Indication: ADENOCARCINOMA GASTRIC
     Dosage: 300 MG, CYCLIC
     Route: 041
     Dates: start: 20150824, end: 20151214

REACTIONS (4)
  - Death [Fatal]
  - Balance disorder [Unknown]
  - Neuropathy peripheral [Not Recovered/Not Resolved]
  - Hypoaesthesia oral [Unknown]

NARRATIVE: CASE EVENT DATE: 20151130
